FAERS Safety Report 5894144-5 (Version None)
Quarter: 2008Q3

REPORT INFORMATION
  Report Type: 
  Country: None (occurrence: None)
  Receive Date: 20080923
  Receipt Date: 20080130
  Transmission Date: 20090109
  Serious: No
  Sender: FDA-Public Use
  Company Number: US-ASTRAZENECA-2008UW02168

PATIENT
  Sex: Female

DRUGS (6)
  1. SEROQUEL [Suspect]
     Indication: BIPOLAR DISORDER
     Route: 048
     Dates: start: 20070801
  2. TOPAMAX [Concomitant]
  3. AMBIEN [Concomitant]
  4. LITHIUM CARBONATE [Concomitant]
  5. PROZAC [Concomitant]
  6. CLONOPIN [Concomitant]

REACTIONS (2)
  - BLOOD TRIGLYCERIDES INCREASED [None]
  - GLUCOSE TOLERANCE IMPAIRED [None]
